FAERS Safety Report 18958284 (Version 3)
Quarter: 2021Q2

REPORT INFORMATION
  Report Type: Report from Study
  Country: SE (occurrence: SE)
  Receive Date: 20210302
  Receipt Date: 20210413
  Transmission Date: 20210717
  Serious: Yes (Other)
  Sender: FDA-Public Use
  Company Number: SE-ALNYLAM PHARMACEUTICALS, INC.-ALN-2020-002431

PATIENT

DRUGS (9)
  1. GIVLAARI [Suspect]
     Active Substance: GIVOSIRAN SODIUM
     Dosage: 0.69 MILLILITER, MONTHLY
     Route: 058
     Dates: start: 20200205
  2. PARACETAMOL [Concomitant]
     Active Substance: ACETAMINOPHEN
     Indication: DYSMENORRHOEA
     Dosage: 500 MILLIGRAM, PRN
     Route: 048
  3. CYANOCOBALAMINE [Concomitant]
     Active Substance: CYANOCOBALAMIN
     Indication: VITAMIN B12 DEFICIENCY
     Dosage: 1 MILLIGRAM, QD
     Route: 048
     Dates: start: 20200525
  4. GIVLAARI [Suspect]
     Active Substance: GIVOSIRAN SODIUM
     Dosage: 0.64 MILLILITER, MONTHLY
     Route: 058
     Dates: start: 20200831
  5. ESOMEPRAZOL [Concomitant]
     Active Substance: ESOMEPRAZOLE
     Indication: GASTRITIS
     Dosage: 20 MILLIGRAM, QD
     Route: 048
  6. ZOPICLONE [Concomitant]
     Active Substance: ZOPICLONE
     Indication: INSOMNIA
     Dosage: 5 MILLIGRAM, QD
     Route: 048
  7. ONDANSETRON [Concomitant]
     Active Substance: ONDANSETRON
     Indication: NAUSEA
     Dosage: 4 MILLIGRAM, PRN
     Route: 048
  8. FOLIC ACID. [Concomitant]
     Active Substance: FOLIC ACID
     Indication: PRODUCT USED FOR UNKNOWN INDICATION
     Dosage: 1 MILLIGRAM, QD
     Route: 048
     Dates: start: 20200910
  9. GIVLAARI [Suspect]
     Active Substance: GIVOSIRAN SODIUM
     Indication: PORPHYRIA ACUTE
     Dosage: 0.65 MILLILITER, MONTHLY
     Route: 058
     Dates: start: 20210128

REACTIONS (2)
  - Blood homocysteine increased [Recovering/Resolving]
  - Blood homocysteine increased [Not Recovered/Not Resolved]

NARRATIVE: CASE EVENT DATE: 20200925
